FAERS Safety Report 9231681 (Version 2)
Quarter: 2013Q2

REPORT INFORMATION
  Report Type: Report from Study
  Country: CA (occurrence: CA)
  Receive Date: 20130415
  Receipt Date: 20130430
  Transmission Date: 20140414
  Serious: Yes (Death, Other)
  Sender: FDA-Public Use
  Company Number: CA-ROCHE-1214000

PATIENT
  Age: 66 Year
  Sex: Male
  Weight: 79.8 kg

DRUGS (11)
  1. RITUXAN [Suspect]
     Indication: VASCULITIS
     Route: 042
     Dates: start: 20111108, end: 20121204
  2. RITUXAN [Suspect]
     Indication: GRANULOMATOSIS WITH POLYANGIITIS
     Route: 042
     Dates: start: 20121204
  3. DIPHENHYDRAMINE HCL [Concomitant]
     Indication: PREMEDICATION
     Route: 048
     Dates: start: 20111108, end: 20121204
  4. ACETAMINOPHEN [Concomitant]
     Indication: PREMEDICATION
     Route: 048
     Dates: start: 20111108, end: 20121204
  5. METHYLPREDNISOLONE [Concomitant]
     Indication: PREMEDICATION
     Route: 042
     Dates: start: 20111108, end: 20121204
  6. PREDNISONE [Concomitant]
  7. AVAPRO [Concomitant]
  8. ALLOPURINOL [Concomitant]
  9. LANSOPRAZOLE [Concomitant]
  10. ALENDRONATE [Concomitant]
  11. METFORMIN [Concomitant]

REACTIONS (7)
  - Pyrexia [Fatal]
  - Feeling cold [Fatal]
  - Restlessness [Fatal]
  - Diarrhoea [Fatal]
  - Vomiting [Fatal]
  - Abdominal discomfort [Fatal]
  - Blood cholesterol increased [Not Recovered/Not Resolved]
